FAERS Safety Report 6355948-8 (Version None)
Quarter: 2009Q3

REPORT INFORMATION
  Report Type: 
  Country: None (occurrence: None)
  Receive Date: 20090915
  Receipt Date: 20090907
  Transmission Date: 20100115
  Serious: Yes (Hospitalization)
  Sender: FDA-Public Use
  Company Number: CN-JNJFOC-20090902769

PATIENT
  Age: 31 Year
  Sex: Female

DRUGS (5)
  1. RISPERDAL [Suspect]
     Route: 048
  2. RISPERDAL [Suspect]
     Route: 048
  3. RISPERDAL [Suspect]
     Route: 048
  4. RISPERDAL [Suspect]
     Indication: SCHIZOPHRENIA
     Route: 048
  5. ALL OTHER THERAPEUTIC DRUGS [Concomitant]
     Indication: SCHIZOPHRENIA
     Route: 065

REACTIONS (6)
  - BRONCHIECTASIS [None]
  - HAEMOPTYSIS [None]
  - HYPOMENORRHOEA [None]
  - MENSTRUATION DELAYED [None]
  - PLATELET COUNT DECREASED [None]
  - WEIGHT INCREASED [None]
